FAERS Safety Report 7775511-1 (Version None)
Quarter: 2011Q3

REPORT INFORMATION
  Report Type: 
  Country: None (occurrence: None)
  Receive Date: 20110923
  Receipt Date: 20101117
  Transmission Date: 20111222
  Serious: Yes (Hospitalization, Other)
  Sender: FDA-Public Use
  Company Number: GB-ROCHE-744469

PATIENT

DRUGS (3)
  1. MYCOPHENOLATE MOFETIL [Suspect]
     Route: 065
  2. ZENAPAX [Suspect]
     Route: 065
  3. TACROLIMUS [Suspect]
     Route: 065

REACTIONS (9)
  - BRADYCARDIA [None]
  - DIARRHOEA [None]
  - VOMITING [None]
  - ACIDOSIS [None]
  - RENAL IMPAIRMENT [None]
  - HYPOKALAEMIA [None]
  - GENERALISED OEDEMA [None]
  - STRIDOR [None]
  - DEHYDRATION [None]
